FAERS Safety Report 8196936-9 (Version None)
Quarter: 2012Q1

REPORT INFORMATION
  Report Type: 
  Country: None (occurrence: None)
  Receive Date: 20120309
  Receipt Date: 20120227
  Transmission Date: 20120608
  Serious: Yes (Disabling)
  Sender: FDA-Public Use
  Company Number: US-JNJFOC-20110911880

PATIENT
  Sex: Male
  Weight: 116.12 kg

DRUGS (9)
  1. AMBIEN [Concomitant]
     Indication: INSOMNIA
     Dosage: AT HOUR OF SLEEP
     Route: 048
     Dates: start: 20110728, end: 20111013
  2. INVEGA SUSTENNA [Suspect]
     Dosage: INITIAL DOSE
     Route: 030
     Dates: start: 20110811
  3. INVEGA SUSTENNA [Suspect]
     Indication: SCHIZOAFFECTIVE DISORDER
     Dosage: INITIAL DOSE
     Route: 030
     Dates: start: 20110811
  4. TOPAMAX [Concomitant]
     Indication: PAIN
     Dosage: AT HOUR OF SLEEP
     Route: 048
  5. OXYCODONE HCL [Concomitant]
     Indication: BREAKTHROUGH PAIN
     Dosage: AT HOUR OF SLEEP
     Route: 048
  6. INVEGA SUSTENNA [Suspect]
     Indication: BIPOLAR DISORDER
     Dosage: MAINTENANCE DOSE
     Route: 030
     Dates: start: 20110911
  7. OXYCONTIN [Concomitant]
     Indication: PAIN
     Route: 048
  8. INVEGA SUSTENNA [Suspect]
     Dosage: MAINTENANCE DOSE
     Route: 030
     Dates: start: 20110911
  9. VENLAFAXINE [Concomitant]
     Indication: DEPRESSION
     Route: 048
     Dates: start: 20110701

REACTIONS (2)
  - INFLUENZA LIKE ILLNESS [None]
  - INJECTION SITE PAIN [None]
